FAERS Safety Report 24608272 (Version 1)
Quarter: 2024Q4

REPORT INFORMATION
  Report Type: Spontaneous
  Country: MY (occurrence: MY)
  Receive Date: 20241112
  Receipt Date: 20241112
  Transmission Date: 20250115
  Serious: Yes (Life-Threatening, Hospitalization)
  Sender: MYLAN
  Company Number: MY-MYLANLABS-2024M1101886

PATIENT
  Age: 22 Year
  Sex: Female

DRUGS (4)
  1. SERTRALINE [Interacting]
     Active Substance: SERTRALINE HYDROCHLORIDE
     Indication: Major depression
     Dosage: UNK, DOSE NOT STATED
     Route: 048
  2. SERTRALINE [Interacting]
     Active Substance: SERTRALINE HYDROCHLORIDE
     Indication: Major depression
     Dosage: 10 DOSAGE FORM {INGESTED 10 TABLETS, IN AN ATTEMPT TO SUICIDE}
     Route: 048
  3. RISPERIDONE [Interacting]
     Active Substance: RISPERIDONE
     Indication: Major depression
     Dosage: UNK, DOSE NOT STATED
     Route: 048
  4. RISPERIDONE [Interacting]
     Active Substance: RISPERIDONE
     Indication: Major depression
     Dosage: 10 DOSAGE FORM (INGESTED 10 TABLETS, IN AN ATTEMPT TO SUICIDE)
     Route: 048

REACTIONS (5)
  - Intentional overdose [Recovering/Resolving]
  - Suicide attempt [Unknown]
  - Serotonin syndrome [Recovering/Resolving]
  - Drug interaction [Unknown]
  - Treatment noncompliance [Unknown]
